FAERS Safety Report 8533630-6 (Version None)
Quarter: 2012Q3

REPORT INFORMATION
  Report Type: 
  Country: None (occurrence: None)
  Receive Date: 20120724
  Receipt Date: 20120713
  Transmission Date: 20120928
  Serious: Yes (Hospitalization, Other)
  Sender: FDA-Public Use
  Company Number: US-BAYER-2012-071601

PATIENT
  Age: 30 Year
  Sex: Female
  Weight: 76 kg

DRUGS (6)
  1. NOVO-CLOXIN [Concomitant]
     Dosage: 250MG CAPSULES TAKE 2 CAPSULES AT ONCE THEN TAKE 1 CAPSULE EVERY 6 HOURS UNTIL FINISHED.
  2. PHOSPHATES [Concomitant]
     Dosage: UNK
     Dates: start: 20091214
  3. DOCUSATE SODIUM [Concomitant]
     Dosage: UNK
     Dates: start: 20091214
  4. IBUPROFEN [Concomitant]
     Dosage: UNK
     Dates: start: 20091214
  5. PERCOCET [Concomitant]
     Dosage: 2 EVERY 4 HOURS
     Dates: start: 20091214
  6. YAZ [Suspect]
     Indication: OVARIAN CYST

REACTIONS (4)
  - CEREBROVASCULAR ACCIDENT [None]
  - CEREBRAL INFARCTION [None]
  - BRAIN STEM INFARCTION [None]
  - EMBOLIC STROKE [None]
